FAERS Safety Report 5673405-9 (Version None)
Quarter: 2008Q1

REPORT INFORMATION
  Report Type: 
  Country: None (occurrence: None)
  Receive Date: 20080317
  Receipt Date: 20080304
  Transmission Date: 20080703
  Serious: Yes (Hospitalization)
  Sender: FDA-Public Use
  Company Number: MEDI-0006622

PATIENT
  Age: 6 Month
  Sex: Male
  Weight: 5.8 kg

DRUGS (1)
  1. SYNAGIS [Suspect]
     Dosage: 60 MG, INTRAMUSCULAR
     Route: 030
     Dates: start: 20071029

REACTIONS (4)
  - BRONCHOPNEUMONIA [None]
  - DIARRHOEA INFECTIOUS [None]
  - RESPIRATORY DISTRESS [None]
  - RHINORRHOEA [None]
